FAERS Safety Report 24292483 (Version 3)
Quarter: 2024Q4

REPORT INFORMATION
  Report Type: Spontaneous
  Country: AU (occurrence: AU)
  Receive Date: 20240906
  Receipt Date: 20241104
  Transmission Date: 20250115
  Serious: Yes (Other)
  Sender: NOVARTIS
  Company Number: AU-002147023-NVSC2024AU178746

PATIENT
  Sex: Female

DRUGS (1)
  1. TOBREX [Suspect]
     Active Substance: TOBRAMYCIN
     Indication: Eyelid operation
     Dosage: UNK
     Route: 065

REACTIONS (3)
  - Cataract [Unknown]
  - Diplopia [Unknown]
  - Product use complaint [Unknown]
